FAERS Safety Report 10478353 (Version 1)
Quarter: 2014Q3

REPORT INFORMATION
  Report Type: Spontaneous
  Country: US (occurrence: None)
  Receive Date: 20140924
  Receipt Date: 20140924
  Transmission Date: 20150326
  Serious: Yes (Other)
  Sender: FDA-Public Use
  Company Number: ADE14-040

PATIENT
  Age: 70 Year
  Sex: Male
  Weight: 125.2 kg

DRUGS (2)
  1. HEPARIN SODIUM. [Suspect]
     Active Substance: HEPARIN SODIUM
     Indication: PERIPHERAL ENDARTERECTOMY
     Route: 042
     Dates: start: 20140909, end: 20140909
  2. HEPARIN SODIUM I [Suspect]
     Active Substance: HEPARIN SODIUM
     Indication: PERIPHERAL ENDARTERECTOMY
     Route: 042
     Dates: start: 20140909, end: 20140909

REACTIONS (1)
  - Drug effect decreased [None]

NARRATIVE: CASE EVENT DATE: 20140909
